FAERS Safety Report 9285068 (Version 2)
Quarter: 2013Q2

REPORT INFORMATION
  Report Type: Report from Study
  Country: CA (occurrence: CA)
  Receive Date: 20130513
  Receipt Date: 20130515
  Transmission Date: 20140414
  Serious: Yes (Death, Hospitalization)
  Sender: FDA-Public Use
  Company Number: CA-ROCHE-1170435

PATIENT
  Age: 77 Year
  Sex: Female
  Weight: 59 kg

DRUGS (9)
  1. AVASTIN [Suspect]
     Indication: OVARIAN CANCER
     Route: 042
     Dates: start: 20121123, end: 20121214
  2. DOMPERIDONE [Concomitant]
  3. ZOPICLONE [Concomitant]
  4. LORAZEPAM [Concomitant]
  5. NORVASC [Concomitant]
  6. OMEPRAZOLE [Concomitant]
  7. ATENOLOL [Concomitant]
  8. RAMIPRIL [Concomitant]
  9. FRAGMIN [Concomitant]

REACTIONS (3)
  - Intestinal obstruction [Not Recovered/Not Resolved]
  - Urinary tract infection [Not Recovered/Not Resolved]
  - Gastrointestinal perforation [Fatal]
